FAERS Safety Report 18632738 (Version 1)
Quarter: 2020Q4

REPORT INFORMATION
  Report Type: Spontaneous
  Country: US (occurrence: US)
  Receive Date: 20201218
  Receipt Date: 20201218
  Transmission Date: 20210114
  Serious: No
  Sender: FDA-Public Use
  Company Number: US-GYP-000238

PATIENT

DRUGS (1)
  1. PREDNISONE. [Suspect]
     Active Substance: PREDNISONE
     Indication: INFLAMMATION
     Dosage: 1-3 DAYS
     Route: 048
     Dates: start: 202003

REACTIONS (4)
  - Product prescribing error [Unknown]
  - Inflammation [Unknown]
  - Condition aggravated [Unknown]
  - Swelling [Unknown]
